FAERS Safety Report 14253273 (Version 2)
Quarter: 2018Q1

REPORT INFORMATION
  Report Type: Report from Study
  Country: GB (occurrence: GB)
  Receive Date: 20171205
  Receipt Date: 20180328
  Transmission Date: 20180508
  Serious: Yes (Hospitalization)
  Sender: FDA-Public Use
  Company Number: GB-ASTRAZENECA-2017SF13994

PATIENT
  Age: 24201 Day
  Sex: Male

DRUGS (11)
  1. MEDI4736 [Suspect]
     Active Substance: DURVALUMAB
     Indication: ADENOCARCINOMA PANCREAS
     Route: 042
     Dates: start: 20171128, end: 20171128
  2. PIRITON [Concomitant]
     Active Substance: CHLORPHENIRAMINE MALEATE
     Indication: INFUSION SITE REACTION
     Dosage: 4 MG DAILY
     Route: 048
     Dates: start: 20171101, end: 20171102
  3. AZD5069 [Suspect]
     Active Substance: INVESTIGATIONAL PRODUCT
     Indication: ADENOCARCINOMA PANCREAS
     Route: 048
     Dates: start: 20171212, end: 20171226
  4. MEDI4736 [Suspect]
     Active Substance: DURVALUMAB
     Indication: ADENOCARCINOMA PANCREAS
     Route: 042
     Dates: start: 20171101, end: 20171101
  5. COCODAMOL 30/500 [Concomitant]
     Indication: PAIN
     Dosage: 2 TABLET AS REQUIRED
     Route: 048
  6. AZD5069 [Suspect]
     Active Substance: INVESTIGATIONAL PRODUCT
     Indication: ADENOCARCINOMA PANCREAS
     Route: 048
     Dates: start: 20171101, end: 20171104
  7. CREON [Concomitant]
     Active Substance: PANCRELIPASE AMYLASE\PANCRELIPASE LIPASE\PANCRELIPASE PROTEASE
     Indication: PANCREATIC FAILURE
     Dosage: 25000.0 MG THREE TIMES A DAY
     Route: 048
  8. HYDROCORTISONE. [Concomitant]
     Active Substance: HYDROCORTISONE
     Indication: INFUSION SITE REACTION
     Dosage: 100 MG ONCE
     Route: 042
     Dates: start: 20171101, end: 20171101
  9. PIRITON [Concomitant]
     Active Substance: CHLORPHENIRAMINE MALEATE
     Indication: INFUSION SITE REACTION
     Dosage: 10.0 MG ONCE
     Route: 042
     Dates: start: 20171101, end: 20171101
  10. AZD5069 [Suspect]
     Active Substance: INVESTIGATIONAL PRODUCT
     Indication: ADENOCARCINOMA PANCREAS
     Route: 048
     Dates: start: 20171121, end: 20171204
  11. HUMAULIN M3 QUICKPEN [Concomitant]
     Indication: DIABETES MELLITUS
     Dosage: 3.0 ML
     Route: 058

REACTIONS (1)
  - Streptococcal sepsis [Recovered/Resolved]

NARRATIVE: CASE EVENT DATE: 20171104
